FAERS Safety Report 20125798 (Version 2)
Quarter: 2022Q1

REPORT INFORMATION
  Report Type: Spontaneous
  Country: US (occurrence: US)
  Receive Date: 20211129
  Receipt Date: 20220216
  Transmission Date: 20220423
  Serious: Yes (Hospitalization, Other)
  Sender: FDA-Public Use
  Company Number: US-PFIZER INC-202101392729

PATIENT
  Age: 61 Year
  Sex: Female

DRUGS (3)
  1. XELJANZ [Suspect]
     Active Substance: TOFACITINIB CITRATE
     Indication: Rheumatoid arthritis
     Dosage: 5 MG, 2X/DAY
     Route: 048
     Dates: start: 20211006, end: 20211010
  2. XELJANZ [Suspect]
     Active Substance: TOFACITINIB CITRATE
     Dosage: 5 MG, 2X/DAY
     Route: 048
     Dates: start: 20211025
  3. XELJANZ [Suspect]
     Active Substance: TOFACITINIB CITRATE
     Dosage: 5 MG, 2X/DAY
     Route: 048
     Dates: start: 20220111, end: 20220117

REACTIONS (13)
  - SARS-CoV-2 test positive [Unknown]
  - Autoimmune disorder [Unknown]
  - Psoriatic arthropathy [Unknown]
  - Pyrexia [Recovered/Resolved]
  - Cough [Unknown]
  - Oropharyngeal pain [Recovered/Resolved]
  - Alopecia [Recovering/Resolving]
  - Inflammation [Unknown]
  - Drug ineffective [Unknown]
  - Blood test abnormal [Unknown]
  - Osteoporosis [Unknown]
  - Arthralgia [Unknown]
  - Fatigue [Unknown]

NARRATIVE: CASE EVENT DATE: 20210101
